FAERS Safety Report 4658986-6 (Version None)
Quarter: 2005Q2

REPORT INFORMATION
  Report Type: 
  Country: None (occurrence: None)
  Receive Date: 20050511
  Receipt Date: 20050429
  Transmission Date: 20051028
  Serious: Yes (Death, Hospitalization, Disabling, Other)
  Sender: FDA-Public Use
  Company Number: DE-SANOFI-SYNTHELABO-F01200500662

PATIENT
  Sex: Male

DRUGS (11)
  1. OXALIPLATIN [Suspect]
     Indication: COLORECTAL CANCER METASTATIC
     Route: 042
  2. CAPECITABINE [Suspect]
     Dosage: 1178 MG TWICE DAILY FOR 2 WEEKS, Q3W
     Route: 048
  3. BEVACIZUMAB OR PLACEBO [Suspect]
     Route: 042
  4. ESOMEPRAZOLE [Concomitant]
  5. MOVICOL [Concomitant]
  6. PENTAERYTHRITOL [Concomitant]
  7. IPRATROPIUM BROMIDE [Concomitant]
     Dosage: UNK
     Route: 065
     Dates: start: 20040819, end: 20040909
  8. ALLOPURINOL [Concomitant]
     Dosage: UNK
     Route: 065
     Dates: start: 20041020
  9. PENTAERYTHRITOL TETRANITRATE [Concomitant]
     Dosage: UNK
     Route: 065
     Dates: start: 20040707
  10. MACROGOL [Concomitant]
     Dosage: UNK
     Route: 065
     Dates: start: 20050309
  11. FENTANYL [Concomitant]
     Dosage: UNK
     Route: 065
     Dates: start: 20050309

REACTIONS (4)
  - COLORECTAL CANCER METASTATIC [None]
  - GENERAL PHYSICAL HEALTH DETERIORATION [None]
  - PNEUMOTHORAX [None]
  - SICK SINUS SYNDROME [None]
